FAERS Safety Report 4829312-4 (Version None)
Quarter: 2005Q4

REPORT INFORMATION
  Report Type: 
  Country: None (occurrence: None)
  Receive Date: 20051028
  Receipt Date: 20050819
  Transmission Date: 20060501
  Serious: Yes (Hospitalization, Other)
  Sender: FDA-Public Use
  Company Number: USA0508105812

PATIENT
  Age: 35 Year
  Sex: Female

DRUGS (1)
  1. SYMBYAX-OLANZAPINW 6MG / FLUOXETINE 25MG (OLANZAPIN [Suspect]
     Indication: BIPOLAR DISORDER
     Dates: start: 20050815, end: 20050816

REACTIONS (1)
  - SOMNOLENCE [None]
